FAERS Safety Report 8474211-2 (Version None)
Quarter: 2012Q2

REPORT INFORMATION
  Report Type: 
  Country: None (occurrence: None)
  Receive Date: 20120628
  Receipt Date: 20120620
  Transmission Date: 20120825
  Serious: Yes (Hospitalization)
  Sender: FDA-Public Use
  Company Number: US-BAYER-2012-004591

PATIENT
  Age: 43 Year
  Sex: Female
  Weight: 73 kg

DRUGS (6)
  1. ATIVAN [Concomitant]
  2. EFFEXOR [Concomitant]
  3. IBUPROFEN (ADVIL) [Concomitant]
  4. YASMIN [Suspect]
     Dosage: UNK
     Dates: start: 20060913, end: 20061003
  5. YASMIN [Suspect]
     Indication: CONTRACEPTION
     Dosage: UNK
     Route: 048
     Dates: start: 20000101, end: 20061001
  6. PERCOCET [Concomitant]

REACTIONS (7)
  - DEEP VEIN THROMBOSIS [None]
  - ANXIETY [None]
  - INJURY [None]
  - PAIN [None]
  - EMOTIONAL DISTRESS [None]
  - GENERAL PHYSICAL HEALTH DETERIORATION [None]
  - ANHEDONIA [None]
